FAERS Safety Report 23814467 (Version 1)
Quarter: 2024Q2

REPORT INFORMATION
  Report Type: Spontaneous
  Country: AR (occurrence: AR)
  Receive Date: 20240503
  Receipt Date: 20240503
  Transmission Date: 20240716
  Serious: Yes (Other)
  Sender: FDA-Public Use
  Company Number: AR-SANDOZ-SDZ2024AR044427

PATIENT
  Age: 5 Year
  Sex: Male
  Weight: 25 kg

DRUGS (1)
  1. OMNITROPE [Suspect]
     Active Substance: SOMATROPIN
     Indication: Growth hormone deficiency
     Dosage: 0,5, 7 DAYS PER WEEK
     Route: 058
     Dates: start: 20181129

REACTIONS (2)
  - Knee deformity [Unknown]
  - Skeletal dysplasia [Unknown]

NARRATIVE: CASE EVENT DATE: 20221201
